FAERS Safety Report 6827867-1 (Version None)
Quarter: 2010Q3

REPORT INFORMATION
  Report Type: 
  Country: None (occurrence: None)
  Receive Date: 20100709
  Receipt Date: 20100623
  Transmission Date: 20110219
  Serious: Yes (Hospitalization)
  Sender: FDA-Public Use
  Company Number: A0817845A

PATIENT
  Age: 46 Year
  Sex: Female

DRUGS (9)
  1. AVANDIA [Suspect]
     Indication: DIABETES MELLITUS
     Dosage: 8MG THREE TIMES PER DAY
     Route: 048
     Dates: start: 19990501
  2. AVANDAMET [Suspect]
     Route: 048
     Dates: start: 20030701
  3. MONOPRIL [Concomitant]
  4. GLUCOTROL XL [Concomitant]
  5. GLUCOPHAGE [Concomitant]
  6. ACCUPRIL [Concomitant]
  7. ISOSORBIDE [Concomitant]
  8. ATENOLOL [Concomitant]
  9. ESTRATEST [Concomitant]

REACTIONS (2)
  - ANGINA PECTORIS [None]
  - CARDIAC FAILURE CONGESTIVE [None]
